FAERS Safety Report 21533607 (Version 1)
Quarter: 2022Q4

REPORT INFORMATION
  Report Type: Spontaneous
  Country: IT (occurrence: IT)
  Receive Date: 20221101
  Receipt Date: 20221101
  Transmission Date: 20230113
  Serious: Yes (Other)
  Sender: FDA-Public Use
  Company Number: None

PATIENT
  Age: 74 Year
  Sex: Female

DRUGS (6)
  1. CLONAZEPAM [Suspect]
     Active Substance: CLONAZEPAM
     Indication: Agitation
     Dosage: 3GTT / DAY
     Route: 048
     Dates: start: 20220714, end: 20220714
  2. GABAPENTIN [Concomitant]
     Active Substance: GABAPENTIN
     Dosage: 3DF EVERY 1 DAY?DAILY DOSE: 3 DOSAGE FORM
  3. PRAMIPEXOLE [Concomitant]
     Active Substance: PRAMIPEXOLE
  4. ROTIGOTINE [Concomitant]
     Active Substance: ROTIGOTINE
     Dosage: 4MG EVERY 1 DAY?DAILY DOSE: 4 MILLIGRAM
  5. ROTIGOTINE [Concomitant]
     Active Substance: ROTIGOTINE
  6. SELEGILINA [Concomitant]
     Dosage: 10MG EVERY 1 DAY?DAILY DOSE: 10 MILLIGRAM

REACTIONS (3)
  - Sopor [Recovered/Resolved]
  - Psychomotor skills impaired [Recovered/Resolved]
  - Drug abuse [Recovered/Resolved]

NARRATIVE: CASE EVENT DATE: 20220714
